FAERS Safety Report 15096977 (Version 2)
Quarter: 2018Q3

REPORT INFORMATION
  Report Type: Spontaneous
  Country: IT (occurrence: IT)
  Receive Date: 20180702
  Receipt Date: 20180725
  Transmission Date: 20181010
  Serious: Yes (Death, Other)
  Sender: FDA-Public Use
  Company Number: IT-BAYER-2018-117902

PATIENT
  Age: 63 Year
  Sex: Male

DRUGS (1)
  1. REGORAFENIB. [Suspect]
     Active Substance: REGORAFENIB
     Indication: COLORECTAL CANCER
     Dosage: DAILY DOSE 160 MG
     Dates: start: 20150626, end: 20151228

REACTIONS (2)
  - Colorectal cancer [Fatal]
  - Hepatic necrosis [None]

NARRATIVE: CASE EVENT DATE: 2015
